FAERS Safety Report 11317191 (Version 1)
Quarter: 2015Q3

REPORT INFORMATION
  Report Type: Spontaneous
  Country: US (occurrence: US)
  Receive Date: 20150728
  Receipt Date: 20150728
  Transmission Date: 20151125
  Serious: Yes (Other)
  Sender: FDA-Public Use
  Company Number: US-PFIZER INC-2015247901

PATIENT
  Age: 57 Year
  Sex: Female
  Weight: 70 kg

DRUGS (2)
  1. AROMASIN [Suspect]
     Active Substance: EXEMESTANE
     Indication: SKIN LESION
     Dosage: UNK
  2. AFINITOR [Suspect]
     Active Substance: EVEROLIMUS
     Indication: SKIN LESION
     Dosage: 5 MG, DAILY
     Route: 048

REACTIONS (29)
  - Neck pain [Unknown]
  - Diarrhoea [Unknown]
  - Swelling face [Unknown]
  - Pain in extremity [Unknown]
  - Osteoarthritis [Unknown]
  - Cellulitis [Recovered/Resolved]
  - Musculoskeletal pain [Unknown]
  - Blood alkaline phosphatase increased [Unknown]
  - Blood bilirubin increased [Unknown]
  - Musculoskeletal chest pain [Unknown]
  - Eating disorder [Unknown]
  - Nerve compression [Unknown]
  - Spinal osteoarthritis [Unknown]
  - Limb discomfort [Unknown]
  - Fall [Unknown]
  - Radiculopathy [Unknown]
  - Insomnia [Recovering/Resolving]
  - Product use issue [Unknown]
  - Oral pain [Unknown]
  - Stomatitis [Unknown]
  - Swelling [Unknown]
  - Erythema [Unknown]
  - Nail disorder [Unknown]
  - Back pain [Unknown]
  - Cough [Not Recovered/Not Resolved]
  - Vomiting [Unknown]
  - Cough [Recovering/Resolving]
  - Back pain [Recovering/Resolving]
  - Injury [Unknown]

NARRATIVE: CASE EVENT DATE: 201410
